FAERS Safety Report 8827845 (Version 2)
Quarter: 2012Q4

REPORT INFORMATION
  Report Type: 
  Country: IT (occurrence: IT)
  Receive Date: 20121008
  Receipt Date: 20121017
  Transmission Date: 20130627
  Serious: No
  Sender: FDA-Public Use
  Company Number: IT-JNJFOC-20121002726

PATIENT
  Age: 40 Year
  Sex: Female

DRUGS (4)
  1. PALEXIA [Suspect]
     Indication: COMPLEX REGIONAL PAIN SYNDROME
     Route: 048
     Dates: end: 201208
  2. PALEXIA [Suspect]
     Indication: COMPLEX REGIONAL PAIN SYNDROME
     Route: 048
     Dates: start: 201206
  3. ANTIDEPRESSANTS [Concomitant]
     Indication: PRODUCT USED FOR UNKNOWN INDICATION
     Route: 065
  4. CORTISONE [Concomitant]
     Route: 065

REACTIONS (5)
  - Hypertensive crisis [Recovered/Resolved]
  - Hyperhidrosis [Recovered/Resolved]
  - Palpitations [Recovered/Resolved]
  - Agitation [Recovered/Resolved]
  - Extrapyramidal disorder [None]
